FAERS Safety Report 13193813 (Version 1)
Quarter: 2017Q1

REPORT INFORMATION
  Report Type: Spontaneous
  Country: CA (occurrence: CA)
  Receive Date: 20170207
  Receipt Date: 20170207
  Transmission Date: 20170428
  Serious: Yes (Other)
  Sender: FDA-Public Use
  Company Number: CA-SHIRE-CA201702531

PATIENT

DRUGS (1)
  1. MEZAVANT [Suspect]
     Active Substance: MESALAMINE
     Indication: COLITIS ULCERATIVE
     Dosage: 2.4 G, 1X/DAY:QD (2 TABLETS AFTER MEAL)
     Route: 048

REACTIONS (2)
  - Gastric ulcer [Unknown]
  - Drug ineffective [Unknown]
